FAERS Safety Report 23187998 (Version 2)
Quarter: 2023Q4

REPORT INFORMATION
  Report Type: Spontaneous
  Country: US (occurrence: US)
  Receive Date: 20231115
  Receipt Date: 20231115
  Transmission Date: 20240110
  Serious: Yes (Hospitalization, Other)
  Sender: FDA-Public Use
  Company Number: US-PFIZER INC-202300358767

PATIENT
  Age: 56 Year
  Sex: Female

DRUGS (1)
  1. XELJANZ XR [Suspect]
     Active Substance: TOFACITINIB CITRATE
     Dosage: 11 MG TAKE 1 TABLET(S) EVERY DAY
     Route: 048
     Dates: start: 202207

REACTIONS (3)
  - Serratia infection [Unknown]
  - Cellulitis [Unknown]
  - Condition aggravated [Unknown]
